FAERS Safety Report 5238084-3 (Version None)
Quarter: 2007Q1

REPORT INFORMATION
  Report Type: 
  Country: None (occurrence: None)
  Receive Date: 20070209
  Receipt Date: 20070209
  Transmission Date: 20070707
  Serious: Yes (Hospitalization)
  Sender: FDA-Public Use
  Company Number: None

PATIENT
  Age: 76 Year
  Sex: Male
  Weight: 175 kg

DRUGS (9)
  1. WARFARIN SODIUM [Suspect]
     Indication: DEEP VEIN THROMBOSIS
     Dosage: 7.5 MG QD PO
     Route: 048
  2. GATIFLOXACIN [Suspect]
     Dosage: 200 MG QD PO
     Route: 048
     Dates: start: 20050609, end: 20050615
  3. INSULIN [Concomitant]
  4. LEVOTHYROXINE SODIUM [Concomitant]
  5. OMEPRAZOLE [Concomitant]
  6. PSYLLIUM [Concomitant]
  7. ZINC [Concomitant]
  8. ASCORBIC ACID [Concomitant]
  9. FERROUS SUL TAB [Concomitant]

REACTIONS (2)
  - HAEMATOCHEZIA [None]
  - INTERNATIONAL NORMALISED RATIO INCREASED [None]
